FAERS Safety Report 8383281-1 (Version None)
Quarter: 2012Q2

REPORT INFORMATION
  Report Type: 
  Country: None (occurrence: None)
  Receive Date: 20120524
  Receipt Date: 20120514
  Transmission Date: 20120825
  Serious: Yes (Hospitalization, Disabling)
  Sender: FDA-Public Use
  Company Number: CA-JNJFOC-20120513160

PATIENT
  Sex: Female
  Weight: 43.6 kg

DRUGS (12)
  1. PREVACID [Concomitant]
     Route: 065
  2. MAGNESIUM [Concomitant]
     Route: 065
  3. APO-NIFED [Concomitant]
     Route: 065
  4. AMITRIPTYLINE HCL [Concomitant]
     Route: 065
  5. METHOTREXATE [Concomitant]
     Route: 065
  6. REMICADE [Suspect]
     Indication: CROHN'S DISEASE
     Route: 042
     Dates: start: 20080131
  7. ARTHROTEC [Concomitant]
     Route: 065
  8. TRIAZIDE [Concomitant]
     Route: 065
  9. POTASSIUM CHLORIDE [Concomitant]
     Route: 065
  10. IMOVANE [Concomitant]
     Route: 065
  11. QUININE SULFATE [Concomitant]
     Route: 065
  12. FOLIC ACID [Concomitant]
     Route: 065

REACTIONS (3)
  - FALL [None]
  - UPPER LIMB FRACTURE [None]
  - CONTUSION [None]
